FAERS Safety Report 8572953-1 (Version None)
Quarter: 2012Q2

REPORT INFORMATION
  Report Type: 
  Country: None (occurrence: None)
  Receive Date: 20120420
  Receipt Date: 20120420
  Transmission Date: 20120825
  Serious: Yes (Other)
  Sender: FDA-Public Use
  Company Number: ALL1-2012-00785

PATIENT
  Sex: Male
  Weight: 102 kg

DRUGS (1)
  1. VYVANSE [Suspect]
     Indication: ATTENTION DEFICIT/HYPERACTIVITY DISORDER
     Dosage: UNK, UNKNOWN, ORAL
     Route: 048
     Dates: start: 20110101

REACTIONS (6)
  - DISTURBANCE IN SOCIAL BEHAVIOUR [None]
  - AGITATION [None]
  - DEPRESSION [None]
  - HALLUCINATION [None]
  - DEPENDENCE [None]
  - SLEEP DISORDER [None]
